FAERS Safety Report 12696512 (Version 1)
Quarter: 2016Q3

REPORT INFORMATION
  Report Type: Spontaneous
  Country: US (occurrence: US)
  Receive Date: 20160830
  Receipt Date: 20160830
  Transmission Date: 20161109
  Serious: No
  Sender: FDA-Public Use
  Company Number: US-APOTEX-2016AP008878

PATIENT

DRUGS (2)
  1. TIZANIDINE HYDROCHLORIDE. [Suspect]
     Active Substance: TIZANIDINE HYDROCHLORIDE
     Indication: INSOMNIA
     Dosage: 32 MG IN THE EVENING AND 12 MG IN DAY
     Route: 065
  2. TIZANIDINE HYDROCHLORIDE. [Suspect]
     Active Substance: TIZANIDINE HYDROCHLORIDE
     Indication: MUSCLE RELAXANT THERAPY
     Dosage: 32 MG IN THE EVENING AND 12 MG IN DAY
     Route: 065

REACTIONS (6)
  - Constipation [Unknown]
  - Sedation [Unknown]
  - Product substitution issue [Unknown]
  - Overdose [Unknown]
  - Dry mouth [Unknown]
  - Drug ineffective [Unknown]
